FAERS Safety Report 22197224 (Version 1)
Quarter: 2023Q2

REPORT INFORMATION
  Report Type: Spontaneous
  Country: US (occurrence: None)
  Receive Date: 20230410
  Receipt Date: 20230410
  Transmission Date: 20230722
  Serious: No
  Sender: FDA-Public Use
  Company Number: None

PATIENT
  Age: 44 Year
  Sex: Female
  Weight: 72.45 kg

DRUGS (6)
  1. MICONAZOLE 7 [Suspect]
     Active Substance: MICONAZOLE NITRATE
     Indication: Fungal infection
     Dosage: OTHER QUANTITY : 7 APPLICATOR;?FREQUENCY : DAILY;?
     Route: 067
  2. FAMVIR [Concomitant]
     Active Substance: FAMCICLOVIR
  3. PROVENTIL [Concomitant]
     Active Substance: ALBUTEROL
  4. VITAMIN D [Concomitant]
     Active Substance: VITAMIN D NOS
  5. MAGNESIUM [Concomitant]
     Active Substance: MAGNESIUM
  6. ZYRTEC [Concomitant]
     Active Substance: CETIRIZINE HYDROCHLORIDE

REACTIONS (2)
  - Dyskinesia [None]
  - Vulvovaginal swelling [None]

NARRATIVE: CASE EVENT DATE: 20230408
